FAERS Safety Report 8122146-7 (Version None)
Quarter: 2012Q1

REPORT INFORMATION
  Report Type: 
  Country: None (occurrence: None)
  Receive Date: 20120206
  Receipt Date: 20120123
  Transmission Date: 20120608
  Serious: Yes (Life-Threatening, Hospitalization, Other)
  Sender: FDA-Public Use
  Company Number: 2012MA000999

PATIENT
  Sex: Male
  Weight: 100.6985 kg

DRUGS (8)
  1. HYDROCHLOROTHIAZIDE [Concomitant]
  2. XYLOCAINE [Concomitant]
  3. DIGOXIN [Suspect]
     Indication: PRODUCT USED FOR UNKNOWN INDICATION
     Dosage: 0.125 MG;QD;PO
     Route: 048
     Dates: start: 20061128, end: 20080908
  4. NITROGLYCERIN [Concomitant]
  5. PLAVIX [Concomitant]
  6. LISINOPRIL [Concomitant]
  7. ASPIRIN [Concomitant]
  8. ZOCOR [Concomitant]

REACTIONS (18)
  - CARDIAC FAILURE CONGESTIVE [None]
  - PULMONARY VASCULAR DISORDER [None]
  - CORONARY ARTERY DISEASE [None]
  - SPINAL OSTEOARTHRITIS [None]
  - CARDIAC ARREST [None]
  - ATRIOVENTRICULAR BLOCK SECOND DEGREE [None]
  - RESPIRATORY DISTRESS [None]
  - MITRAL VALVE INCOMPETENCE [None]
  - ILEUS [None]
  - CARDIOMEGALY [None]
  - PULMONARY OEDEMA [None]
  - HYPERTENSION [None]
  - TRICUSPID VALVE INCOMPETENCE [None]
  - PLEURAL EFFUSION [None]
  - SCAR [None]
  - CARDIAC PACEMAKER INSERTION [None]
  - ATRIOVENTRICULAR BLOCK COMPLETE [None]
  - DYSLIPIDAEMIA [None]
